FAERS Safety Report 11087496 (Version 1)
Quarter: 2015Q2

REPORT INFORMATION
  Report Type: Spontaneous
  Country: US (occurrence: US)
  Receive Date: 20150504
  Receipt Date: 20150504
  Transmission Date: 20150821
  Serious: Yes (Death, Hospitalization)
  Sender: FDA-Public Use
  Company Number: US-PFIZER INC-2015068395

PATIENT
  Age: 57 Year
  Sex: Female

DRUGS (2)
  1. GLEEVEC [Concomitant]
     Active Substance: IMATINIB MESYLATE
  2. SUTENT [Suspect]
     Active Substance: SUNITINIB MALATE
     Dosage: 50 MG, CYCLIC, 28 DAYS ON AND 14 OFF
     Route: 048
     Dates: start: 20150306, end: 20150408

REACTIONS (1)
  - Death [Fatal]

NARRATIVE: CASE EVENT DATE: 20150415
